FAERS Safety Report 17472737 (Version 1)
Quarter: 2020Q1

REPORT INFORMATION
  Report Type: Spontaneous
  Country: US (occurrence: US)
  Receive Date: 20200227
  Receipt Date: 20200227
  Transmission Date: 20200409
  Serious: Yes (Other)
  Sender: FDA-Public Use
  Company Number: None

PATIENT
  Age: 79 Year
  Sex: Female
  Weight: 51.3 kg

DRUGS (4)
  1. AMLODIPINE-OLMESARTAN 10/40MG TAB [Suspect]
     Active Substance: AMLODIPINE MALEATE\OLMESARTAN MEDOXOMIL
     Indication: BLOOD PRESSURE MEASUREMENT
     Dosage: ?          QUANTITY:90 TABLET(S);?
     Route: 048
     Dates: start: 20190304, end: 20190306
  2. MAGNESIUM [Concomitant]
     Active Substance: MAGNESIUM
  3. ASA [Concomitant]
     Active Substance: ASPIRIN
  4. HYOSCYAMINE. [Concomitant]
     Active Substance: HYOSCYAMINE

REACTIONS (3)
  - Product substitution issue [None]
  - Allergic reaction to excipient [None]
  - Nausea [None]

NARRATIVE: CASE EVENT DATE: 20190304
